FAERS Safety Report 7101151-3 (Version None)
Quarter: 2010Q4

REPORT INFORMATION
  Report Type: 
  Country: None (occurrence: None)
  Receive Date: 20101105
  Receipt Date: 20101025
  Transmission Date: 20110411
  Serious: Yes (Other)
  Sender: FDA-Public Use
  Company Number: 2010100036

PATIENT
  Age: 58 Year
  Sex: Female

DRUGS (3)
  1. ONSOLIS [Suspect]
     Indication: CANCER PAIN
     Dosage: TITRATE UP TO 4-200MG FILMS PER DOSE (UP TO 4 TIMES A DAY), BU
     Route: 002
     Dates: start: 20100101, end: 20100101
  2. ONSOLIS [Suspect]
     Indication: CANCER PAIN
     Dosage: TITRATE UP TO 4-200MG FILMS PER DOSE (UP TO 4 TIMES A DAY), BU
     Route: 002
     Dates: start: 20100101, end: 20100101
  3. LOPRESSOR (METOPROLOL) [Concomitant]

REACTIONS (3)
  - FALL [None]
  - HEAD INJURY [None]
  - LOSS OF CONSCIOUSNESS [None]
